FAERS Safety Report 9078452 (Version 4)
Quarter: 2013Q2

REPORT INFORMATION
  Report Type: Spontaneous
  Country: US (occurrence: US)
  Receive Date: 20130215
  Receipt Date: 20130426
  Transmission Date: 20140414
  Serious: No
  Sender: FDA-Public Use
  Company Number: US-009507513-1302USA004959

PATIENT
  Sex: Male

DRUGS (4)
  1. VICTRELIS [Suspect]
     Indication: HEPATITIS C
     Dosage: UNK
     Route: 048
     Dates: start: 20130208, end: 2013
  2. REBETOL [Suspect]
     Indication: HEPATITIS C
     Dosage: 6 DF, DAILY
     Route: 048
     Dates: start: 20130111
  3. REBETOL [Suspect]
     Dosage: 4 DF, DAILY
     Route: 048
     Dates: start: 2013
  4. PEGASYS [Suspect]
     Indication: HEPATITIS C
     Dosage: UNK
     Dates: start: 20130111, end: 2013

REACTIONS (32)
  - Oral candidiasis [Recovered/Resolved]
  - Gastrointestinal disorder [Unknown]
  - Tongue disorder [Unknown]
  - Skin disorder [Unknown]
  - Glossodynia [Unknown]
  - Gastrointestinal disorder [Unknown]
  - Candida infection [Unknown]
  - Respiratory disorder [Unknown]
  - Fatigue [Unknown]
  - Pain [Unknown]
  - Nausea [Unknown]
  - Pollakiuria [Unknown]
  - Dry mouth [Unknown]
  - Dysgeusia [Unknown]
  - Fatigue [Unknown]
  - Dyspnoea [Unknown]
  - Insomnia [Unknown]
  - Fatigue [Unknown]
  - Pollakiuria [Unknown]
  - Diarrhoea [Unknown]
  - Anaemia [Unknown]
  - Dry mouth [Unknown]
  - Dysgeusia [Unknown]
  - Leukoplakia oral [Unknown]
  - Glossodynia [Unknown]
  - Oral pain [Unknown]
  - Stomatitis [Unknown]
  - Nausea [Unknown]
  - Dizziness [Unknown]
  - Fatigue [Unknown]
  - Red blood cell count decreased [Unknown]
  - Haemoglobin decreased [Unknown]
